FAERS Safety Report 12170520 (Version 5)
Quarter: 2019Q2

REPORT INFORMATION
  Report Type: Spontaneous
  Country: US (occurrence: US)
  Receive Date: 20160311
  Receipt Date: 20190517
  Transmission Date: 20190711
  Serious: Yes (Other)
  Sender: FDA-Public Use
  Company Number: US-PFIZER INC-2016123070

PATIENT
  Age: 68 Year
  Sex: Male
  Weight: 136 kg

DRUGS (12)
  1. LYRICA [Suspect]
     Active Substance: PREGABALIN
     Indication: FEMUR FRACTURE
     Dosage: 200 MG, 3X/DAY
     Route: 048
  2. LYRICA [Suspect]
     Active Substance: PREGABALIN
     Indication: DIABETIC NEUROPATHY
     Dosage: 100 MG, 3X/DAY
     Route: 048
  3. ASPIRIN. [Concomitant]
     Active Substance: ASPIRIN
     Dosage: 81 MG, 1X/DAY
  4. CARVEDILOL. [Concomitant]
     Active Substance: CARVEDILOL
     Dosage: 12.5 MG, 2X/DAY
  5. METFORMIN [Concomitant]
     Active Substance: METFORMIN HYDROCHLORIDE
     Dosage: 1000 MG, UNK
  6. SPIRONOLACTONE. [Concomitant]
     Active Substance: SPIRONOLACTONE
     Dosage: 25 MG, UNK
  7. QUINAPRIL. [Concomitant]
     Active Substance: QUINAPRIL
     Dosage: 10 MG, UNK
  8. LYRICA [Suspect]
     Active Substance: PREGABALIN
     Indication: LOWER LIMB FRACTURE
     Dosage: 300 MG, 3X/DAY
     Route: 048
  9. ALLOPURINOL. [Concomitant]
     Active Substance: ALLOPURINOL
     Indication: GOUT
     Dosage: 300 MG, UNK
  10. CYMBALTA [Concomitant]
     Active Substance: DULOXETINE HYDROCHLORIDE
     Dosage: UNK
  11. LANTUS [Concomitant]
     Active Substance: INSULIN GLARGINE
     Indication: DIABETES MELLITUS
     Dosage: 80 UNITS IN THE MORNING AND AT NIGHT
  12. NOVOLOG [Concomitant]
     Active Substance: INSULIN ASPART
     Indication: DIABETES MELLITUS
     Dosage: PER SLIDING SCALE

REACTIONS (11)
  - Pain [Unknown]
  - Lower limb fracture [Unknown]
  - Prescribed overdose [Unknown]
  - Insomnia [Unknown]
  - Femur fracture [Unknown]
  - Drug tolerance [Unknown]
  - Pain in extremity [Unknown]
  - Product dose omission [Unknown]
  - Fall [Unknown]
  - Drug ineffective [Unknown]
  - Arthralgia [Unknown]
